FAERS Safety Report 11190411 (Version 2)
Quarter: 2015Q3

REPORT INFORMATION
  Report Type: Spontaneous
  Country: US (occurrence: US)
  Receive Date: 20150615
  Receipt Date: 20150720
  Transmission Date: 20151125
  Serious: Yes (Death)
  Sender: FDA-Public Use
  Company Number: US-INCYTE CORPORATION-2015IN002750

PATIENT
  Age: 86 Year
  Sex: Male
  Weight: 73.92 kg

DRUGS (5)
  1. HYDROXYUREA. [Concomitant]
     Active Substance: HYDROXYUREA
  2. JAKAFI [Suspect]
     Active Substance: RUXOLITINIB
     Indication: CHRONIC MYELOID LEUKAEMIA
     Dosage: 10 MG, BID
     Route: 048
     Dates: start: 20150508, end: 20150527
  3. TRIAMTERENE. [Concomitant]
     Active Substance: TRIAMTERENE
  4. ATENOLOL. [Concomitant]
     Active Substance: ATENOLOL
  5. PENICILLIN                         /00000901/ [Concomitant]
     Active Substance: PENICILLIN G

REACTIONS (2)
  - Off label use [Unknown]
  - Death [Fatal]

NARRATIVE: CASE EVENT DATE: 20150508
